FAERS Safety Report 4431146-X (Version None)
Quarter: 2004Q3

REPORT INFORMATION
  Report Type: 
  Country: None (occurrence: None)
  Receive Date: 20040824
  Receipt Date: 20040525
  Transmission Date: 20050211
  Serious: Yes (Other)
  Sender: FDA-Public Use
  Company Number: FR-BRISTOL-MYERS SQUIBB COMPANY-12596516

PATIENT
  Age: 75 Year
  Sex: Male
  Weight: 84 kg

DRUGS (4)
  1. ELISOR TABS 20 MG [Suspect]
     Indication: HYPERCHOLESTEROLAEMIA
     Route: 048
     Dates: start: 20040201, end: 20040509
  2. GLICLAZIDE [Concomitant]
     Indication: DIABETES MELLITUS
     Dates: start: 20030101
  3. ASPEGIC 325 [Concomitant]
     Dates: start: 20040201
  4. TAREG [Concomitant]
     Indication: HYPERTENSION
     Dates: start: 20030101

REACTIONS (1)
  - HEPATITIS [None]
